FAERS Safety Report 5154992-6 (Version None)
Quarter: 2006Q4

REPORT INFORMATION
  Report Type: 
  Country: None (occurrence: None)
  Receive Date: 20061121
  Receipt Date: 20060925
  Transmission Date: 20070319
  Serious: Yes (Hospitalization)
  Sender: FDA-Public Use
  Company Number: DE-ROCHE-464683

PATIENT
  Age: 53 Year
  Sex: Male
  Weight: 82 kg

DRUGS (5)
  1. PEGASYS [Suspect]
     Indication: HEPATITIS C
     Route: 058
     Dates: start: 20050207, end: 20051231
  2. COPEGUS [Suspect]
     Indication: HEPATITIS C
     Route: 048
     Dates: start: 20050207, end: 20050405
  3. COPEGUS [Suspect]
     Route: 048
     Dates: start: 20050406, end: 20051231
  4. AMANTADINE HCL [Suspect]
     Indication: HEPATITIS C
     Route: 048
     Dates: start: 20050207, end: 20051231
  5. ESCITALOPRAM OXALATE [Concomitant]
     Indication: DEPRESSION
     Route: 048
     Dates: start: 20041213

REACTIONS (7)
  - ATRIAL FIBRILLATION [None]
  - BLOOD CREATINE PHOSPHOKINASE INCREASED [None]
  - BLOOD GLUCOSE INCREASED [None]
  - CARDIAC FAILURE [None]
  - HYPERTROPHIC CARDIOMYOPATHY [None]
  - MITRAL VALVE INCOMPETENCE [None]
  - VENTRICULAR SEPTAL DEFECT [None]
